FAERS Safety Report 19733430 (Version 1)
Quarter: 2021Q3

REPORT INFORMATION
  Report Type: Spontaneous
  Country: BR (occurrence: BR)
  Receive Date: 20210823
  Receipt Date: 20210823
  Transmission Date: 20211014
  Serious: Yes (Death, Life-Threatening, Hospitalization)
  Sender: FDA-Public Use
  Company Number: BR-TEVA-2021-BR-1945240

PATIENT
  Age: 55 Year
  Sex: Male
  Weight: 64 kg

DRUGS (4)
  1. OPDIVO [Concomitant]
     Active Substance: NIVOLUMAB
     Dosage: ADDED TO THE FOLFOX PROTOCOL
     Dates: start: 20210623
  2. TEVAOXALI [Suspect]
     Active Substance: OXALIPLATIN
     Indication: GASTRIC CANCER STAGE IV
     Dosage: 85 MG/M  EVERY 14 DAYS
     Route: 042
     Dates: start: 20180130
  3. FAULDLEUCO (FOLIC ACID) [Concomitant]
  4. TEVAGRASTIM [Concomitant]
     Active Substance: FILGRASTIM

REACTIONS (7)
  - Death [Fatal]
  - Haematuria [Not Recovered/Not Resolved]
  - Renal failure [Not Recovered/Not Resolved]
  - Polyuria [Not Recovered/Not Resolved]
  - Rash [Recovered/Resolved]
  - Hyperaemia [Recovered/Resolved]
  - Chromaturia [Not Recovered/Not Resolved]

NARRATIVE: CASE EVENT DATE: 20210804
